FAERS Safety Report 10052146 (Version 1)
Quarter: 2014Q2

REPORT INFORMATION
  Report Type: Spontaneous
  Country: US (occurrence: None)
  Receive Date: 20140401
  Receipt Date: 20140401
  Transmission Date: 20141212
  Serious: Yes (Other)
  Sender: FDA-Public Use
  Company Number: None

PATIENT
  Age: 21 Year
  Sex: Male
  Weight: 73.48 kg

DRUGS (2)
  1. TRAZODONE [Suspect]
     Indication: ANXIETY
     Dosage: AT BEDTIME, TAKEN BY MOUTH
  2. TRAZODONE [Suspect]
     Indication: SLEEP DISORDER
     Dosage: AT BEDTIME, TAKEN BY MOUTH

REACTIONS (1)
  - Headache [None]
